FAERS Safety Report 9468147 (Version 2)
Quarter: 2013Q4

REPORT INFORMATION
  Report Type: Spontaneous
  Country: IT (occurrence: IT)
  Receive Date: 20130821
  Receipt Date: 20131014
  Transmission Date: 20140711
  Serious: Yes (Hospitalization)
  Sender: FDA-Public Use
  Company Number: IT-SANOFI-AVENTIS-2013SA081750

PATIENT
  Age: 84 Year
  Sex: Female

DRUGS (3)
  1. FUROSEMIDE [Suspect]
     Indication: PRODUCT USED FOR UNKNOWN INDICATION
     Route: 048
     Dates: start: 20120414, end: 20130413
  2. ENALAPRIL MALEATE [Suspect]
     Indication: PRODUCT USED FOR UNKNOWN INDICATION
     Route: 048
     Dates: start: 20120414, end: 20130413
  3. ASA [Concomitant]

REACTIONS (2)
  - Dysarthria [Not Recovered/Not Resolved]
  - Syncope [Not Recovered/Not Resolved]
